FAERS Safety Report 15351008 (Version 2)
Quarter: 2018Q3

REPORT INFORMATION
  Report Type: Spontaneous
  Country: US (occurrence: US)
  Receive Date: 20180905
  Receipt Date: 20180910
  Transmission Date: 20181010
  Serious: Yes (Other)
  Sender: FDA-Public Use
  Company Number: US-CIPLA LTD.-2018US21034

PATIENT

DRUGS (1)
  1. CELECOXIB. [Suspect]
     Active Substance: CELECOXIB
     Indication: PRODUCT USED FOR UNKNOWN INDICATION
     Dosage: UNK
     Route: 048

REACTIONS (6)
  - Tinnitus [Unknown]
  - Peripheral swelling [Unknown]
  - Insomnia [Unknown]
  - Hypertension [Unknown]
  - Pain in extremity [Unknown]
  - Product substitution issue [Unknown]
